FAERS Safety Report 9208165 (Version 2)
Quarter: 2013Q3

REPORT INFORMATION
  Report Type: Spontaneous
  Country: TR (occurrence: TR)
  Receive Date: 20130403
  Receipt Date: 20130701
  Transmission Date: 20140515
  Serious: Yes (Hospitalization)
  Sender: FDA-Public Use
  Company Number: PHHY2013TR031434

PATIENT
  Age: 33 Year
  Sex: Male

DRUGS (1)
  1. NAPROXEN SODIUM [Suspect]
     Indication: RENAL COLIC
     Dosage: 550 MG, UNK

REACTIONS (9)
  - Kounis syndrome [Unknown]
  - Chest pain [Unknown]
  - Electrocardiogram T wave inversion [Recovering/Resolving]
  - Electrocardiogram ST segment elevation [Recovering/Resolving]
  - Troponin I increased [Recovering/Resolving]
  - Leukocytosis [Unknown]
  - Blood creatine phosphokinase increased [Recovering/Resolving]
  - Blood creatine phosphokinase MB increased [Recovering/Resolving]
  - Myoglobin blood increased [Recovering/Resolving]
